FAERS Safety Report 11180167 (Version 1)
Quarter: 2015Q2

REPORT INFORMATION
  Report Type: Spontaneous
  Country: JP (occurrence: JP)
  Receive Date: 20150611
  Receipt Date: 20150611
  Transmission Date: 20150821
  Serious: Yes (Other)
  Sender: FDA-Public Use
  Company Number: JP-PFIZER INC-2015186722

PATIENT
  Age: 65 Year
  Sex: Female

DRUGS (4)
  1. GEMCITABINE HYDROCHLORIDE. [Suspect]
     Active Substance: GEMCITABINE HYDROCHLORIDE
     Indication: BILE DUCT CANCER
  2. SUNITINIB MALATE [Suspect]
     Active Substance: SUNITINIB MALATE
     Indication: BILE DUCT CANCER
  3. GEMCITABINE HYDROCHLORIDE. [Suspect]
     Active Substance: GEMCITABINE HYDROCHLORIDE
     Indication: METASTATIC RENAL CELL CARCINOMA
     Dosage: 750 MG/M2, (DAY 1, 8)
  4. SUNITINIB MALATE [Suspect]
     Active Substance: SUNITINIB MALATE
     Indication: METASTATIC RENAL CELL CARCINOMA
     Dosage: 25 MG, DAILY (DAYS 2-15 ON, DAYS 1 AND 16-21 OFF) 21 DAY CYCLE

REACTIONS (9)
  - Lipase increased [Recovering/Resolving]
  - Thrombocytopenia [Recovering/Resolving]
  - Pyrexia [Recovering/Resolving]
  - Blood alkaline phosphatase increased [Recovering/Resolving]
  - Depressed level of consciousness [Recovering/Resolving]
  - Gamma-glutamyltransferase increased [Recovering/Resolving]
  - Hypothyroidism [Recovering/Resolving]
  - Neutropenia [Recovering/Resolving]
  - Inappropriate antidiuretic hormone secretion [Recovering/Resolving]
